FAERS Safety Report 15710823 (Version 1)
Quarter: 2018Q4

REPORT INFORMATION
  Report Type: Spontaneous
  Country: US (occurrence: US)
  Receive Date: 20181211
  Receipt Date: 20181211
  Transmission Date: 20190205
  Serious: No
  Sender: FDA-Public Use
  Company Number: US-SA-2018SA335592

PATIENT
  Age: 23 Year
  Sex: Male

DRUGS (1)
  1. ALLEGRA [Suspect]
     Active Substance: FEXOFENADINE HYDROCHLORIDE
     Indication: NASOPHARYNGITIS
     Dosage: 60 MG, QD
     Route: 065

REACTIONS (3)
  - Anxiety [Unknown]
  - Headache [Unknown]
  - No adverse event [Unknown]

NARRATIVE: CASE EVENT DATE: 20181204
